FAERS Safety Report 6997205-2 (Version None)
Quarter: 2010Q3

REPORT INFORMATION
  Report Type: 
  Country: None (occurrence: None)
  Receive Date: 20100918
  Receipt Date: 20090922
  Transmission Date: 20110219
  Serious: No
  Sender: FDA-Public Use
  Company Number: US-WYE-H11167909

PATIENT
  Sex: Female
  Weight: 99.88 kg

DRUGS (2)
  1. PRISTIQ [Suspect]
     Indication: DEPRESSION
     Route: 048
     Dates: start: 20090919
  2. NORVASC [Concomitant]

REACTIONS (2)
  - MYDRIASIS [None]
  - PHOTOPHOBIA [None]
